FAERS Safety Report 9971962 (Version 1)
Quarter: 2014Q1

REPORT INFORMATION
  Report Type: Report from Study
  Country: US (occurrence: US)
  Receive Date: 20140306
  Receipt Date: 20140306
  Transmission Date: 20141002
  Serious: No
  Sender: FDA-Public Use
  Company Number: US-ABBVIE-13P-163-1152893-00

PATIENT
  Sex: Male
  Weight: 104.42 kg

DRUGS (9)
  1. HUMIRA [Suspect]
     Indication: PSORIASIS
     Dosage: LOADING DOSE
     Route: 058
     Dates: start: 20130928, end: 20130928
  2. HUMIRA [Suspect]
     Route: 058
  3. OMEPRAZOLE [Concomitant]
     Indication: GASTROOESOPHAGEAL REFLUX DISEASE
     Dosage: 20 MG DAILY
  4. SIMVASTATIN [Concomitant]
     Indication: BLOOD CHOLESTEROL INCREASED
     Dosage: 20 MG DAILY
  5. ECOTRIN [Concomitant]
     Indication: PRODUCT USED FOR UNKNOWN INDICATION
  6. CENTRUM [Concomitant]
     Indication: PRODUCT USED FOR UNKNOWN INDICATION
  7. UNKNOWN TOPICALS [Concomitant]
     Indication: PRODUCT USED FOR UNKNOWN INDICATION
  8. WARFARIN [Concomitant]
     Indication: AORTIC VALVE REPLACEMENT
     Dosage: 10 MG EVERY TUESDAY AND THURSDAY; 7.5 MG OTHER DAYS
  9. BABY ASPIRIN [Concomitant]
     Indication: AORTIC VALVE REPLACEMENT

REACTIONS (2)
  - Injection site mass [Unknown]
  - Injection site bruising [Unknown]
